FAERS Safety Report 8927782 (Version 1)
Quarter: 2012Q4

REPORT INFORMATION
  Report Type: 
  Country: JP (occurrence: JP)
  Receive Date: 20121127
  Receipt Date: 20121127
  Transmission Date: 20130627
  Serious: Yes (Death)
  Sender: FDA-Public Use
  Company Number: JP-BAYER-2012-110183

PATIENT
  Age: 74 Year
  Sex: Male

DRUGS (4)
  1. NEXAVAR [Suspect]
     Indication: CARCINOMA HEPATOCELLULAR
     Dosage: 200 mg, BID
     Route: 048
     Dates: start: 20120918, end: 20121009
  2. LASIX [Concomitant]
     Dosage: Daily dose 40 mg
     Route: 048
     Dates: end: 20121009
  3. ALLOPURINOL [Concomitant]
     Dosage: Daily dose 100 mg
     Route: 048
     Dates: end: 20121009
  4. PLETAAL [Concomitant]
     Dosage: Daily dose 100 mg
     Route: 048
     Dates: end: 20121009

REACTIONS (1)
  - Cardiac arrest [Fatal]
